FAERS Safety Report 6639342-8 (Version None)
Quarter: 2010Q1

REPORT INFORMATION
  Report Type: 
  Country: None (occurrence: None)
  Receive Date: 20100315
  Receipt Date: 20100305
  Transmission Date: 20100710
  Serious: Yes (Death)
  Sender: FDA-Public Use
  Company Number: DSA_42630_2010

PATIENT
  Sex: Female

DRUGS (9)
  1. XENAZINE [Suspect]
     Indication: DYSKINESIA
     Dosage: SEE IMAGE
     Route: 048
     Dates: start: 20090101, end: 20090203
  2. XENAZINE [Suspect]
     Indication: DYSTONIA
     Dosage: SEE IMAGE
     Route: 048
     Dates: start: 20090101, end: 20090203
  3. XENAZINE [Suspect]
     Indication: MEIGE'S SYNDROME
     Dosage: SEE IMAGE
     Route: 048
     Dates: start: 20090101, end: 20090203
  4. XENAZINE [Suspect]
     Indication: DYSKINESIA
     Dosage: SEE IMAGE
     Route: 048
     Dates: start: 20090101
  5. XENAZINE [Suspect]
     Indication: DYSTONIA
     Dosage: SEE IMAGE
     Route: 048
     Dates: start: 20090101
  6. XENAZINE [Suspect]
     Indication: MEIGE'S SYNDROME
     Dosage: SEE IMAGE
     Route: 048
     Dates: start: 20090101
  7. XENAZINE [Suspect]
     Indication: DYSKINESIA
     Dosage: SEE IMAGE
     Route: 048
     Dates: start: 20090801
  8. XENAZINE [Suspect]
     Indication: DYSTONIA
     Dosage: SEE IMAGE
     Route: 048
     Dates: start: 20090801
  9. XENAZINE [Suspect]
     Indication: MEIGE'S SYNDROME
     Dosage: SEE IMAGE
     Route: 048
     Dates: start: 20090801

REACTIONS (1)
  - DEATH [None]
